FAERS Safety Report 8606340-4 (Version None)
Quarter: 2012Q3

REPORT INFORMATION
  Report Type: 
  Country: None (occurrence: None)
  Receive Date: 20120820
  Receipt Date: 20120815
  Transmission Date: 20120928
  Serious: Yes (Death, Life-Threatening, Hospitalization)
  Sender: FDA-Public Use
  Company Number: IE-ASTRAZENECA-2012SE19536

PATIENT
  Sex: Female
  Weight: 59.3 kg

DRUGS (16)
  1. FLUTICASONE PROPIONATE/SALMETEROL [Concomitant]
  2. NOCTAMID [Concomitant]
  3. MAXIDEX [Concomitant]
  4. LEVOTHYROXINE SODIUM [Concomitant]
  5. INDAPAMIDE [Concomitant]
     Dosage: 1.5
     Dates: start: 20060103
  6. VIMOVO [Suspect]
     Indication: BACK PAIN
     Dosage: 500MG/20MG TWICE A DAY
     Route: 048
     Dates: start: 20120213
  7. SERTRALINE HYDROCHLORIDE [Concomitant]
     Dates: start: 20111103
  8. DIAZEPAM [Concomitant]
     Dates: start: 20110831
  9. AQUEOUS CREAM [Concomitant]
  10. GAVISCON [Concomitant]
     Dates: start: 20040720
  11. FELDENE [Concomitant]
  12. TIOTROPIUM [Concomitant]
  13. ALBUTEROL [Concomitant]
  14. ROSUVASTATIN [Concomitant]
  15. PERINDOPRIL ERBUMINE [Concomitant]
  16. SERTRALINE HYDROCHLORIDE [Concomitant]
     Indication: DEPRESSION
     Dates: start: 20110307, end: 20111103

REACTIONS (4)
  - INTESTINAL HAEMORRHAGE [None]
  - INTESTINAL PERFORATION [None]
  - RESPIRATORY FAILURE [None]
  - PNEUMONIA [None]
